FAERS Safety Report 8103404-9 (Version None)
Quarter: 2012Q1

REPORT INFORMATION
  Report Type: 
  Country: None (occurrence: None)
  Receive Date: 20120201
  Receipt Date: 20120125
  Transmission Date: 20120608
  Serious: Yes (Hospitalization)
  Sender: FDA-Public Use
  Company Number: US-ROCHE-1034114

PATIENT
  Sex: Female

DRUGS (4)
  1. HERCEPTIN [Suspect]
     Indication: BREAST CANCER
     Route: 042
     Dates: start: 20061101, end: 20071001
  2. TAXOL [Concomitant]
  3. ADRIAMYCIN PFS [Concomitant]
  4. CYTOXAN [Concomitant]

REACTIONS (4)
  - DEHYDRATION [None]
  - NEUROPATHY PERIPHERAL [None]
  - NERVE INJURY [None]
  - DECREASED APPETITE [None]
